FAERS Safety Report 9933306 (Version 1)
Quarter: 2014Q1

REPORT INFORMATION
  Report Type: Report from Study
  Country: US (occurrence: US)
  Receive Date: 20140228
  Receipt Date: 20140228
  Transmission Date: 20141002
  Serious: No
  Sender: FDA-Public Use
  Company Number: US-MYLANLABS-2013S1004155

PATIENT
  Age: 27 Year
  Sex: Female

DRUGS (3)
  1. AMNESTEEM CAPSULES [Suspect]
     Route: 048
  2. CLARAVIS [Suspect]
  3. SOTRET [Suspect]

REACTIONS (1)
  - Laboratory test abnormal [Not Recovered/Not Resolved]
